FAERS Safety Report 25352926 (Version 3)
Quarter: 2025Q2

REPORT INFORMATION
  Report Type: Report from Study
  Country: US (occurrence: US)
  Receive Date: 20250523
  Receipt Date: 20250626
  Transmission Date: 20250716
  Serious: No
  Sender: MALLINCKRODT
  Company Number: US-MALLINCKRODT-MNK202502807

PATIENT
  Age: 50 Year
  Sex: Female

DRUGS (5)
  1. CORTICOTROPIN [Suspect]
     Active Substance: CORTICOTROPIN
     Indication: Pulmonary sarcoidosis
     Dosage: 80 UNITS
     Dates: start: 20250503, end: 2025
  2. CORTICOTROPIN [Suspect]
     Active Substance: CORTICOTROPIN
     Indication: Pulmonary sarcoidosis
     Dosage: 80 UNITS
     Route: 058
     Dates: start: 202504, end: 2025
  3. PREDNISONE [Concomitant]
     Active Substance: PREDNISONE
  4. PREDNISONE [Concomitant]
     Active Substance: PREDNISONE
  5. REMICADE [Concomitant]
     Active Substance: INFLIXIMAB

REACTIONS (9)
  - Tremor [Unknown]
  - Adverse drug reaction [Unknown]
  - Fluid retention [Unknown]
  - Peripheral swelling [Unknown]
  - Injection site discharge [Not Recovered/Not Resolved]
  - Hypersensitivity [Unknown]
  - Swelling face [Unknown]
  - Injection site haemorrhage [Unknown]
  - Therapy non-responder [Unknown]

NARRATIVE: CASE EVENT DATE: 20250101
